FAERS Safety Report 13561841 (Version 1)
Quarter: 2017Q2

REPORT INFORMATION
  Report Type: Spontaneous
  Country: DK (occurrence: DK)
  Receive Date: 20170518
  Receipt Date: 20170518
  Transmission Date: 20170830
  Serious: Yes (Other)
  Sender: FDA-Public Use
  Company Number: DK-MYLANLABS-2017M1029115

PATIENT

DRUGS (16)
  1. METOPROLOL. [Suspect]
     Active Substance: METOPROLOL
     Indication: BLOOD PRESSURE MEASUREMENT
     Dosage: STRENGTH: 50 MG, 1 IN MORNING AND 1 IN EVENING
     Route: 065
  2. METFORMIN [Interacting]
     Active Substance: METFORMIN HYDROCHLORIDE
     Indication: TYPE 2 DIABETES MELLITUS
     Dosage: STRENGTH: 500 MG, 2 IN MORNING, 2 IN EVENING
     Route: 065
  3. ELDEPRYL [Interacting]
     Active Substance: SELEGILINE HYDROCHLORIDE
     Dosage: STRENGTH :5 MG (REDUCED TO 5 MG 5 DAYS AGO)
     Route: 048
  4. VESICARE [Interacting]
     Active Substance: SOLIFENACIN SUCCINATE
     Dosage: STRENGTH: 10 MG, 1 AT 20 PM
     Route: 065
  5. AMLODIPINE [Concomitant]
     Active Substance: AMLODIPINE BESYLATE
     Indication: BLOOD PRESSURE MEASUREMENT
     Dosage: STRENGTH: 5 MG, IN MORNING
     Route: 065
  6. LOSARTAN. [Concomitant]
     Active Substance: LOSARTAN
     Indication: BLOOD PRESSURE MEASUREMENT
     Dosage: 100 MG/25 MG, IN MORNING
     Route: 065
  7. VITAMIN D [Concomitant]
     Active Substance: CHOLECALCIFEROL
     Dosage: STRENGTH: 85 MCG, IN MORNING
     Route: 065
  8. ELDEPRYL [Interacting]
     Active Substance: SELEGILINE HYDROCHLORIDE
     Indication: PARKINSON^S DISEASE
     Dosage: STRENGTH: 10 MG
     Route: 048
     Dates: start: 20160607, end: 20170109
  9. OMNIMIN [Concomitant]
     Dosage: 1 IN MORNING AND 1 IN EVENING
     Route: 065
  10. PANTOPRAZOLE [Concomitant]
     Active Substance: PANTOPRAZOLE
     Dosage: 1 IN MORNING
     Route: 065
  11. SINEMET [Concomitant]
     Active Substance: CARBIDOPA\LEVODOPA
     Dosage: STRENGTH: 12.5/50 MG, 2 EACH IN MORNING, LUNCH AND EVENING
     Route: 065
  12. VAGIFEM [Concomitant]
     Active Substance: ESTRADIOL
     Dosage: 1 ON WEDNESDAY AND SATURDAY
     Route: 065
  13. VESICARE [Interacting]
     Active Substance: SOLIFENACIN SUCCINATE
     Dosage: LAST 5 DAYS, HALF TABLET
     Dates: end: 20170109
  14. MAGNESIUM [Concomitant]
     Active Substance: MAGNESIUM
     Indication: MUSCLE SPASMS
     Dosage: 1 AT 18 PM AND 2 AT 20 PM
     Route: 065
  15. PANODIL [Concomitant]
     Active Substance: ACETAMINOPHEN
     Dosage: 2 IN MORNING AND 2 IN EVENING, SOMETIMES MORE
     Route: 065
  16. SPIRIX [Concomitant]
     Active Substance: SPIRONOLACTONE
     Indication: BLOOD PRESSURE MEASUREMENT
     Dosage: STRENGTH: 25 MG, IN MORNING
     Route: 065

REACTIONS (5)
  - Dry mouth [Unknown]
  - Drug interaction [Unknown]
  - Weight decreased [Unknown]
  - Decreased appetite [Unknown]
  - Knee operation [Unknown]

NARRATIVE: CASE EVENT DATE: 20160624
